FAERS Safety Report 21203944 (Version 11)
Quarter: 2023Q1

REPORT INFORMATION
  Report Type: Spontaneous
  Country: CA (occurrence: CA)
  Receive Date: 20220811
  Receipt Date: 20230317
  Transmission Date: 20230417
  Serious: Yes (Congenital Anomaly, Other)
  Sender: FDA-Public Use
  Company Number: CA-CELLTRION INC.-2022CA001970

PATIENT

DRUGS (22)
  1. INFLECTRA [Suspect]
     Active Substance: INFLIXIMAB-DYYB
     Indication: Colitis ulcerative
     Dosage: 10 MG/KG, 0,2,6 THEN EVERY 8 WEEKS
     Route: 042
     Dates: start: 20211130
  2. INFLECTRA [Suspect]
     Active Substance: INFLIXIMAB-DYYB
     Dosage: 10 MG/KG WEEKS 0,2,6 THEN EVERY 4 WEEKS
     Route: 042
     Dates: start: 20211130, end: 20221020
  3. INFLECTRA [Suspect]
     Active Substance: INFLIXIMAB-DYYB
     Dosage: 10 MG/KG, 0,2,6 THEN EVERY 8 WEEKS
     Route: 042
     Dates: start: 20211214
  4. INFLECTRA [Suspect]
     Active Substance: INFLIXIMAB-DYYB
     Dosage: 10 MG/KG, 0,2,6 THEN EVERY 8 WEEKS
     Route: 042
     Dates: start: 20220111
  5. INFLECTRA [Suspect]
     Active Substance: INFLIXIMAB-DYYB
     Dosage: 10 MG/KG, 0,2,6 THEN EVERY 4 WEEKS
     Route: 042
     Dates: start: 20220222
  6. INFLECTRA [Suspect]
     Active Substance: INFLIXIMAB-DYYB
     Dosage: 10 MG/KG, 0,2,6 THEN EVERY 4 WEEKS
     Route: 042
     Dates: start: 20220322
  7. INFLECTRA [Suspect]
     Active Substance: INFLIXIMAB-DYYB
     Dosage: 10 MG/KG, 0,2,6 THEN EVERY 4 WEEKS
     Route: 042
     Dates: start: 20220428
  8. INFLECTRA [Suspect]
     Active Substance: INFLIXIMAB-DYYB
     Dosage: 10 MG/KG, 0,2,6 THEN EVERY 4 WEEKS
     Route: 042
     Dates: start: 20220428
  9. INFLECTRA [Suspect]
     Active Substance: INFLIXIMAB-DYYB
     Dosage: 10 MG/KG, 0,2,6 THEN EVERY 4 WEEKS
     Route: 042
     Dates: start: 20220526
  10. INFLECTRA [Suspect]
     Active Substance: INFLIXIMAB-DYYB
     Dosage: 10 MG/KG, 0,2,6 THEN EVERY 4 WEEKS
     Route: 042
     Dates: start: 20220621
  11. INFLECTRA [Suspect]
     Active Substance: INFLIXIMAB-DYYB
     Dosage: 10 MG/KG, 0,2,6 THEN EVERY 4 WEEKS
     Route: 042
     Dates: start: 20220727
  12. INFLECTRA [Suspect]
     Active Substance: INFLIXIMAB-DYYB
     Dosage: 10 MG/KG, 0,2,6 THEN EVERY 4 WEEKS
     Route: 042
     Dates: start: 20220817
  13. INFLECTRA [Suspect]
     Active Substance: INFLIXIMAB-DYYB
     Dosage: 10 MG/KG, 0,2,6 THEN EVERY 4 WEEKS
     Route: 042
     Dates: start: 20220923
  14. INFLECTRA [Suspect]
     Active Substance: INFLIXIMAB-DYYB
     Dosage: 10MG /KG WEEKS 0,2,6 THEN EVERY 4 WEEKS
     Route: 042
     Dates: start: 20221020
  15. INFLECTRA [Suspect]
     Active Substance: INFLIXIMAB-DYYB
     Dosage: 10MG /KG, EVERY 5 WEEKS
     Route: 042
     Dates: start: 20221122
  16. INFLECTRA [Suspect]
     Active Substance: INFLIXIMAB-DYYB
     Dosage: 10MG /KG, EVERY 5 WEEKS
     Route: 042
     Dates: start: 20221228
  17. INFLECTRA [Suspect]
     Active Substance: INFLIXIMAB-DYYB
     Dosage: 10MG /KG (820MG), EVERY 5 WEEKS
     Route: 042
     Dates: start: 20230202
  18. INFLECTRA [Suspect]
     Active Substance: INFLIXIMAB-DYYB
     Dosage: 10MG /KG (820MG), EVERY 5 WEEKS
     Route: 042
     Dates: start: 20230202
  19. INFLECTRA [Suspect]
     Active Substance: INFLIXIMAB-DYYB
     Dosage: 840 MG EVERY 5 WEEKS
     Route: 042
     Dates: start: 20230308
  20. PREDNISONE [Concomitant]
     Active Substance: PREDNISONE
     Dosage: 15 MG, DAILY (DECREASED)
  21. ERGOCALCIFEROL [Concomitant]
     Active Substance: ERGOCALCIFEROL
     Dosage: UNK
  22. ERGOCALCIFEROL [Concomitant]
     Active Substance: ERGOCALCIFEROL
     Dosage: 1 DF, DOSAGE NOT AVAILABLE
     Route: 065

REACTIONS (15)
  - Haematochezia [Recovering/Resolving]
  - Mucous stools [Recovering/Resolving]
  - Off label use [Unknown]
  - Off label use [Unknown]
  - Inappropriate schedule of product administration [Unknown]
  - Frequent bowel movements [Unknown]
  - Acne [Recovering/Resolving]
  - Abdominal distension [Recovering/Resolving]
  - Therapeutic response shortened [Unknown]
  - Condition aggravated [Recovered/Resolved]
  - Diarrhoea [Unknown]
  - Constipation [Recovering/Resolving]
  - Pruritus [Recovering/Resolving]
  - Eczema [Recovering/Resolving]
  - Alopecia [Recovering/Resolving]

NARRATIVE: CASE EVENT DATE: 20211130
